FAERS Safety Report 6449129-7 (Version None)
Quarter: 2009Q4

REPORT INFORMATION
  Report Type: 
  Country: None (occurrence: None)
  Receive Date: 20091119
  Receipt Date: 20091119
  Transmission Date: 20100525
  Serious: No
  Sender: FDA-Public Use
  Company Number: None

PATIENT
  Age: 9 Year
  Sex: Female
  Weight: 32.659 kg

DRUGS (1)
  1. TAMIFLU [Suspect]
     Indication: INFLUENZA
     Dosage: TWICE DAILY
     Dates: start: 20091031, end: 20091103

REACTIONS (19)
  - ABDOMINAL PAIN UPPER [None]
  - AGITATION [None]
  - ANGER [None]
  - ARTHRALGIA [None]
  - CRYING [None]
  - DEPRESSED MOOD [None]
  - DIZZINESS [None]
  - FEAR [None]
  - FEELING ABNORMAL [None]
  - HEADACHE [None]
  - IRRITABILITY [None]
  - MIDDLE EAR EFFUSION [None]
  - MYALGIA [None]
  - NAUSEA [None]
  - NECK PAIN [None]
  - PANIC ATTACK [None]
  - PARANOIA [None]
  - SINUSITIS [None]
  - TACHYPHRENIA [None]
